FAERS Safety Report 21076186 (Version 1)
Quarter: 2022Q3

REPORT INFORMATION
  Report Type: Spontaneous
  Country: US (occurrence: None)
  Receive Date: 20220713
  Receipt Date: 20220713
  Transmission Date: 20221026
  Serious: Yes (Death)
  Sender: FDA-Public Use
  Company Number: None

PATIENT
  Age: 76 Year
  Sex: Male
  Weight: 91.63 kg

DRUGS (28)
  1. IMFINZI [Suspect]
     Active Substance: DURVALUMAB
     Indication: Lung carcinoma cell type unspecified stage 0
     Dosage: FREQUENCY : EVERY OTHER WEEK;?
     Route: 042
     Dates: start: 202202
  2. ALBUTEROL [Concomitant]
     Active Substance: ALBUTEROL
  3. AMLODIPINE [Concomitant]
     Active Substance: AMLODIPINE BESYLATE
  4. AZITHROMYCIN [Concomitant]
     Active Substance: AZITHROMYCIN
  5. BACTRIM DS [Concomitant]
     Active Substance: SULFAMETHOXAZOLE\TRIMETHOPRIM
  6. BENZONATATE [Concomitant]
     Active Substance: BENZONATATE
  7. CIPROFLOXACIN [Concomitant]
     Active Substance: CIPROFLOXACIN
  8. ETHAMBUTOL [Concomitant]
     Active Substance: ETHAMBUTOL HYDROCHLORIDE
  9. FLUTICASONE-SALMETEROL [Concomitant]
  10. FOLIC ACID [Concomitant]
     Active Substance: FOLIC ACID
  11. GUAIFENESIN AC [Concomitant]
     Active Substance: CODEINE PHOSPHATE\GUAIFENESIN
  12. KEYTRUDA [Concomitant]
     Active Substance: PEMBROLIZUMAB
  13. LEVETIRACETAM [Concomitant]
     Active Substance: LEVETIRACETAM
  14. LOPERAMIDE [Concomitant]
     Active Substance: LOPERAMIDE
  15. LORATADINE [Concomitant]
     Active Substance: LORATADINE
  16. MUCINEX [Concomitant]
     Active Substance: GUAIFENESIN
  17. VITAMINS [Concomitant]
     Active Substance: VITAMINS
  18. PLAVIX [Concomitant]
     Active Substance: CLOPIDOGREL BISULFATE
  19. PROCHLORPERAZINE [Concomitant]
     Active Substance: PROCHLORPERAZINE
  20. REVATIO [Concomitant]
     Active Substance: SILDENAFIL CITRATE
  21. RIFAMPIN [Concomitant]
     Active Substance: RIFAMPIN
  22. SUPER D3 [Concomitant]
  23. TAMSULOSIN [Concomitant]
     Active Substance: TAMSULOSIN
  24. TRELEGY ELLIPTA [Concomitant]
     Active Substance: FLUTICASONE FUROATE\UMECLIDINIUM BROMIDE\VILANTEROL TRIFENATATE
  25. VITAMIN C [Concomitant]
     Active Substance: ASCORBIC ACID
  26. VITAMIN D [Concomitant]
     Active Substance: VITAMIN D NOS
  27. VITAMIN D3 [Concomitant]
     Active Substance: CHOLECALCIFEROL
  28. MENAQUINONE 6 [Concomitant]
     Active Substance: MENAQUINONE 6

REACTIONS (1)
  - Death [None]
